FAERS Safety Report 9768601 (Version 1)
Quarter: 2013Q4

REPORT INFORMATION
  Report Type: Report from Study
  Country: GB (occurrence: GB)
  Receive Date: 20131218
  Receipt Date: 20131218
  Transmission Date: 20140711
  Serious: Yes (Death, Other)
  Sender: FDA-Public Use
  Company Number: GB-ROCHE-1318496

PATIENT
  Age: 59 Year
  Sex: Female

DRUGS (6)
  1. BEVACIZUMAB [Suspect]
     Indication: PRODUCT USED FOR UNKNOWN INDICATION
     Route: 065
     Dates: start: 201010, end: 201108
  2. GEMCITABINE [Concomitant]
     Dosage: D1 AND D8
     Route: 065
  3. GEMCITABINE [Concomitant]
     Dosage: DOSE REDUCED
     Route: 065
  4. CARBOPLATIN [Concomitant]
     Dosage: Q21DX6
     Route: 065
     Dates: end: 201004
  5. PACLITAXEL [Concomitant]
     Dosage: Q21DX6
     Route: 065
     Dates: end: 201004
  6. DOXORUBICIN [Concomitant]
     Route: 065

REACTIONS (9)
  - Large intestine perforation [Fatal]
  - Diabetes mellitus [Unknown]
  - Disease progression [Unknown]
  - Ascites [Unknown]
  - Bone marrow failure [Unknown]
  - Anaemia [Unknown]
  - Thrombocytopenia [Unknown]
  - Abdominal pain [Unknown]
  - Large intestinal obstruction [Unknown]
